FAERS Safety Report 6433570-2 (Version None)
Quarter: 2009Q4

REPORT INFORMATION
  Report Type: 
  Country: None (occurrence: None)
  Receive Date: 20091110
  Receipt Date: 20091029
  Transmission Date: 20100525
  Serious: Yes (Hospitalization)
  Sender: FDA-Public Use
  Company Number: BR-BAYER-200817599LA

PATIENT
  Age: 24 Year
  Sex: Female

DRUGS (2)
  1. BETAFERON [Suspect]
     Indication: MULTIPLE SCLEROSIS
     Dosage: BETAJECT
     Route: 058
  2. BETAFERON [Suspect]
     Dosage: BETAJECT
     Route: 058
     Dates: start: 20041101, end: 20080601

REACTIONS (4)
  - GAIT DISTURBANCE [None]
  - HOSPITALISATION [None]
  - INJECTION SITE PAIN [None]
  - MULTIPLE SCLEROSIS [None]
